FAERS Safety Report 5489101-7 (Version None)
Quarter: 2007Q4

REPORT INFORMATION
  Report Type: 
  Country: None (occurrence: None)
  Receive Date: 20071018
  Receipt Date: 20071008
  Transmission Date: 20080405
  Serious: No
  Sender: FDA-Public Use
  Company Number: DE-BAXTER-2007BH007439

PATIENT
  Age: 62 Year
  Sex: Female

DRUGS (2)
  1. SODIUM CHLORIDE 0.9% IN PLASTIC CONTAINER [Suspect]
     Indication: APHERESIS
     Route: 065
     Dates: start: 20070801, end: 20070801
  2. ACID-CITRATE-DEXTROSE SOLUTION [Suspect]
     Indication: APHERESIS
     Dosage: DOSE UNIT:UNKNOWN
     Route: 065

REACTIONS (2)
  - CIRCULATORY COLLAPSE [None]
  - FEELING HOT [None]
